FAERS Safety Report 19078557 (Version 1)
Quarter: 2021Q1

REPORT INFORMATION
  Report Type: Other
  Country: US (occurrence: US)
  Receive Date: 20210331
  Receipt Date: 20210331
  Transmission Date: 20210420
  Serious: Yes (Other)
  Sender: FDA-Public Use
  Company Number: US-ROCHE-2787610

PATIENT
  Sex: Female
  Weight: 60.38 kg

DRUGS (18)
  1. ACETAMINOFEN [Concomitant]
     Active Substance: ACETAMINOPHEN
     Dosage: AS NEEDED
  2. ACTEMRA [Suspect]
     Active Substance: TOCILIZUMAB
     Indication: GIANT CELL ARTERITIS
     Dosage: 162MG/0.9ML ;ONGOING: YES, INJECTION
     Route: 058
     Dates: start: 201908
  3. LEVOTHYROXINE. [Concomitant]
     Active Substance: LEVOTHYROXINE
     Dosage: ALTERNATE BETWEEN 88MCG AND 100MCG
  4. METOPROLOL. [Concomitant]
     Active Substance: METOPROLOL
     Indication: HYPERTENSION
  5. VITAMIN C [Concomitant]
     Active Substance: ASCORBIC ACID
     Dates: start: 2020
  6. ACTEMRA [Suspect]
     Active Substance: TOCILIZUMAB
  7. ACTEMRA [Suspect]
     Active Substance: TOCILIZUMAB
     Indication: AUTOIMMUNE DISORDER
     Route: 058
  8. LORAZEPAM. [Concomitant]
     Active Substance: LORAZEPAM
     Dosage: AS NEEDED
  9. TEMAZEPAM. [Concomitant]
     Active Substance: TEMAZEPAM
     Dosage: AS NEEDED
     Dates: start: 2020
  10. ACTEMRA [Suspect]
     Active Substance: TOCILIZUMAB
     Indication: GIANT CELL ARTERITIS
     Route: 058
  11. CALCIUM CITRATE + D3 [Concomitant]
     Dosage: 13MCG D3, 630MG CALCIUM
  12. MAGNESIUM CHELATE [Concomitant]
     Active Substance: MAGNESIUM
  13. PREDNISOLONE. [Concomitant]
     Active Substance: PREDNISOLONE
  14. ESTRADIOL. [Concomitant]
     Active Substance: ESTRADIOL
     Indication: ATROPHIC VULVOVAGINITIS
     Route: 067
  15. ACTEMRA [Suspect]
     Active Substance: TOCILIZUMAB
  16. PREDNISONE. [Concomitant]
     Active Substance: PREDNISONE
     Route: 048
  17. LEVOTHYROXINE. [Concomitant]
     Active Substance: LEVOTHYROXINE
     Dosage: ALTERNATE BETWEEN 88MCG AND 100MCG
  18. VITAMIN B COMPLEX [Concomitant]
     Active Substance: CYANOCOBALAMIN\DEXPANTHENOL\NIACINAMIDE\PYRIDOXINE HYDROCHLORIDE\RIBOFLAVIN 5^-PHOSPHATE SODIUM\THIAMINE HYDROCHLORIDE\VITAMIN B COMPLEX
     Dates: start: 2020

REACTIONS (9)
  - Vitamin D decreased [Unknown]
  - Pain [Unknown]
  - Pain in jaw [Recovering/Resolving]
  - Headache [Unknown]
  - Ear pain [Recovering/Resolving]
  - Vitamin B12 decreased [Unknown]
  - Blindness unilateral [Unknown]
  - Photopsia [Recovered/Resolved]
  - Headache [Recovered/Resolved]

NARRATIVE: CASE EVENT DATE: 2020
